FAERS Safety Report 10955722 (Version 3)
Quarter: 2016Q4

REPORT INFORMATION
  Report Type: Report from Study
  Country: JP (occurrence: JP)
  Receive Date: 20150326
  Receipt Date: 20161006
  Transmission Date: 20170206
  Serious: Yes (Other)
  Sender: FDA-Public Use
  Company Number: JP-JNJFOC-20150311304

PATIENT
  Age: 47 Year
  Sex: Female
  Weight: 65 kg

DRUGS (10)
  1. RIBAVIRIN. [Concomitant]
     Active Substance: RIBAVIRIN
     Indication: CHRONIC HEPATITIS C
     Route: 048
     Dates: start: 20140514, end: 20141028
  2. PEGASYS [Suspect]
     Active Substance: PEGINTERFERON ALFA-2A
     Indication: CHRONIC HEPATITIS C
     Route: 058
     Dates: start: 20140611, end: 20140730
  3. URSO [Concomitant]
     Active Substance: URSODIOL
     Indication: CHRONIC HEPATITIS C
     Route: 048
     Dates: end: 20140520
  4. PEGASYS [Suspect]
     Active Substance: PEGINTERFERON ALFA-2A
     Indication: CHRONIC HEPATITIS C
     Route: 058
     Dates: start: 20140528, end: 20140604
  5. PEGASYS [Suspect]
     Active Substance: PEGINTERFERON ALFA-2A
     Indication: CHRONIC HEPATITIS C
     Route: 058
     Dates: start: 20140813, end: 20141022
  6. PEGASYS [Suspect]
     Active Substance: PEGINTERFERON ALFA-2A
     Indication: CHRONIC HEPATITIS C
     Route: 058
     Dates: start: 20140514, end: 20140520
  7. PEGASYS [Suspect]
     Active Substance: PEGINTERFERON ALFA-2A
     Indication: CHRONIC HEPATITIS C
     Route: 058
     Dates: start: 20140806, end: 20140806
  8. URSO [Concomitant]
     Active Substance: URSODIOL
     Indication: CHRONIC HEPATITIS C
     Route: 048
     Dates: start: 20140521
  9. SOVRIAD [Suspect]
     Active Substance: SIMEPREVIR
     Indication: CHRONIC HEPATITIS C
     Route: 048
     Dates: start: 20140514, end: 20140806
  10. HOKUNALIN [Concomitant]
     Active Substance: TULOBUTEROL
     Indication: EMPHYSEMA
     Route: 062

REACTIONS (1)
  - Neutrophil count decreased [Recovered/Resolved]

NARRATIVE: CASE EVENT DATE: 20140528
